FAERS Safety Report 17647105 (Version 2)
Quarter: 2020Q2

REPORT INFORMATION
  Report Type: Report from Study
  Country: PH (occurrence: PH)
  Receive Date: 20200409
  Receipt Date: 20200610
  Transmission Date: 20200713
  Serious: Yes (Hospitalization)
  Sender: FDA-Public Use
  Company Number: PH-TAKEDA-2020TUS016877

PATIENT
  Sex: Male

DRUGS (1)
  1. VEDOLIZUMAB [Suspect]
     Active Substance: VEDOLIZUMAB
     Indication: CROHN^S DISEASE
     Dosage: 30 MILLIGRAM
     Route: 042
     Dates: start: 20200229

REACTIONS (1)
  - Haemoglobin decreased [Unknown]
